FAERS Safety Report 19476577 (Version 1)
Quarter: 2021Q2

REPORT INFORMATION
  Report Type: Spontaneous
  Country: FR (occurrence: FR)
  Receive Date: 20210630
  Receipt Date: 20210630
  Transmission Date: 20210717
  Serious: Yes (Other)
  Sender: FDA-Public Use
  Company Number: FR-TEVA-2021-FR-1927269

PATIENT
  Age: 57 Year
  Sex: Female

DRUGS (4)
  1. OXALIPLATIN. [Suspect]
     Active Substance: OXALIPLATIN
     Indication: COLORECTAL ADENOCARCINOMA
     Dosage: PART OF FOLFIRINOX REGIMEN AND FOLFOX REGIMEN
     Route: 065
     Dates: start: 2019, end: 2019
  2. 5?FLUOROURACIL [Concomitant]
     Active Substance: FLUOROURACIL
     Indication: COLORECTAL ADENOCARCINOMA
     Dosage: PART OF FOLFIRINOX REGIMEN AND FOLFOX REGIMEN
     Route: 065
     Dates: start: 2019
  3. FOLINIC?ACID [Concomitant]
     Active Substance: LEUCOVORIN
     Indication: COLORECTAL ADENOCARCINOMA
     Dosage: PART OF FOLFIRINOX REGIMEN AND FOLFOX REGIMEN
     Route: 065
     Dates: start: 2019
  4. IRINOTECAN [Concomitant]
     Active Substance: IRINOTECAN
     Indication: COLORECTAL ADENOCARCINOMA
     Dosage: PART OF FOLFIRINOX REGIMEN
     Route: 065
     Dates: start: 2019, end: 2019

REACTIONS (1)
  - Blindness [Recovered/Resolved]

NARRATIVE: CASE EVENT DATE: 2019
